FAERS Safety Report 18078477 (Version 5)
Quarter: 2020Q4

REPORT INFORMATION
  Report Type: Report from Study
  Country: None (occurrence: ES)
  Receive Date: 20200727
  Receipt Date: 20201014
  Transmission Date: 20210113
  Serious: Yes (Other)
  Sender: FDA-Public Use
  Company Number: ES-ABBVIE-20K-144-3498193-00

PATIENT
  Age: 73 Year
  Sex: Male

DRUGS (4)
  1. DUODOPA [Suspect]
     Active Substance: CARBIDOPA\LEVODOPA
     Dosage: REDUCE MD  TO 6.5+3PURGED, INCREASE CD TO 3.2ML/H, REDUCE ED TO 2.8ML.
     Route: 050
     Dates: start: 202008, end: 20200921
  2. DUODOPA [Suspect]
     Active Substance: CARBIDOPA\LEVODOPA
     Indication: PARKINSON^S DISEASE
     Route: 050
     Dates: start: 20191127, end: 202008
  3. DUODOPA [Suspect]
     Active Substance: CARBIDOPA\LEVODOPA
     Dosage: LOWER THE CONTINUOUS DOSE BY 0.2ML / H
     Route: 050
     Dates: start: 20200921
  4. SINEMET [Concomitant]
     Active Substance: CARBIDOPA\LEVODOPA
     Indication: PRODUCT USED FOR UNKNOWN INDICATION
     Dosage: RETARD, EVERY 24 HOURS AT NIGHT
     Route: 048

REACTIONS (16)
  - Intentional product use issue [Unknown]
  - Mobility decreased [Unknown]
  - Muscle rigidity [Recovered/Resolved]
  - Therapeutic product effect incomplete [Unknown]
  - Fine motor skill dysfunction [Unknown]
  - Dystonia [Recovered/Resolved]
  - Freezing phenomenon [Unknown]
  - Unevaluable event [Unknown]
  - Pain in extremity [Recovered/Resolved]
  - Pain [Unknown]
  - Hypoaesthesia [Unknown]
  - Pain in extremity [Recovered/Resolved]
  - On and off phenomenon [Unknown]
  - Dyskinesia [Unknown]
  - Musculoskeletal stiffness [Recovered/Resolved]
  - Condition aggravated [Unknown]

NARRATIVE: CASE EVENT DATE: 2020
